FAERS Safety Report 15023140 (Version 1)
Quarter: 2018Q2

REPORT INFORMATION
  Report Type: Spontaneous
  Country: GB (occurrence: GB)
  Receive Date: 20180618
  Receipt Date: 20180618
  Transmission Date: 20180711
  Serious: Yes (Life-Threatening, Hospitalization)
  Sender: FDA-Public Use
  Company Number: GB-TEVA-2018-GB-909588

PATIENT
  Age: 25 Year
  Sex: Male

DRUGS (4)
  1. LACTULOSE. [Concomitant]
     Active Substance: LACTULOSE
     Route: 065
  2. VITAMIN B COMPLEX STRONG [Concomitant]
     Route: 065
  3. BACLOFEN. [Suspect]
     Active Substance: BACLOFEN
     Indication: ALCOHOL ABUSE
     Dosage: 10MG THREE TIMES DAILY FOR 2 DAYS THEN 20MG THREE TIMES DAILY
     Route: 048
     Dates: start: 20180420
  4. THIAMINE. [Concomitant]
     Active Substance: THIAMINE
     Route: 065

REACTIONS (4)
  - Somnolence [Unknown]
  - Neurological symptom [Unknown]
  - Intentional overdose [Recovering/Resolving]
  - Seizure [Unknown]

NARRATIVE: CASE EVENT DATE: 20180422
